FAERS Safety Report 4335533-X (Version None)
Quarter: 2004Q2

REPORT INFORMATION
  Report Type: 
  Country: None (occurrence: None)
  Receive Date: 20040406
  Receipt Date: 20040324
  Transmission Date: 20050107
  Serious: Yes (Other)
  Sender: FDA-Public Use
  Company Number: 2004020392

PATIENT
  Age: 52 Year
  Sex: Female
  Weight: 65.7716 kg

DRUGS (5)
  1. NARDIL [Suspect]
     Indication: DEPRESSION
  2. SURMONTIL [Suspect]
     Indication: ILL-DEFINED DISORDER
  3. LITHIUM CARBONATE [Concomitant]
  4. LEVOTHYROXINE SODIUM [Concomitant]
  5. ALPRAZOLAM [Concomitant]

REACTIONS (10)
  - ANXIETY [None]
  - BLADDER DISORDER [None]
  - BLOOD PRESSURE INCREASED [None]
  - CYSTITIS [None]
  - DRUG INTERACTION [None]
  - DYSURIA [None]
  - ELECTROCONVULSIVE THERAPY [None]
  - PALPITATIONS [None]
  - PANIC ATTACK [None]
  - URINARY RETENTION [None]
